FAERS Safety Report 17166630 (Version 1)
Quarter: 2019Q4

REPORT INFORMATION
  Report Type: Spontaneous
  Country: IT (occurrence: IT)
  Receive Date: 20191217
  Receipt Date: 20191217
  Transmission Date: 20200122
  Serious: Yes (Hospitalization)
  Sender: FDA-Public Use
  Company Number: IT-PFIZER INC-2019541492

PATIENT
  Age: 73 Year
  Sex: Female
  Weight: 65 kg

DRUGS (6)
  1. MONURIL [Concomitant]
     Active Substance: FOSFOMYCIN TROMETHAMINE
     Dosage: 3 G, UNK
  2. VESSEL [CINNARIZINE] [Concomitant]
     Dosage: UNK
  3. FOLINA [FOLIC ACID] [Concomitant]
     Active Substance: FOLIC ACID
     Dosage: 5 MG, UNK
  4. TOPOTECAN HYDROCHLORIDE. [Suspect]
     Active Substance: TOPOTECAN HYDROCHLORIDE
     Indication: UTERINE CANCER
     Dosage: 5 MG, UNK (TOTAL)
     Route: 042
     Dates: start: 20190918, end: 20190918
  5. ASPIRIN. [Concomitant]
     Active Substance: ASPIRIN
     Dosage: 100 MG, UNK
  6. DESAMETASONE FOSF [DEXAMETHASONE SODIUM PHOSPHATE] [Concomitant]
     Dosage: 4MG/ML, UNK

REACTIONS (4)
  - Product use in unapproved indication [Unknown]
  - Neutropenia [Recovering/Resolving]
  - Leukocoria [Recovering/Resolving]
  - Off label use [Unknown]

NARRATIVE: CASE EVENT DATE: 20190918
